FAERS Safety Report 17934576 (Version 1)
Quarter: 2020Q2

REPORT INFORMATION
  Report Type: Spontaneous
  Country: US (occurrence: US)
  Receive Date: 20200624
  Receipt Date: 20200624
  Transmission Date: 20200714
  Serious: No
  Sender: FDA-Public Use
  Company Number: US-BAYER-2020-127048

PATIENT
  Age: 43 Year
  Sex: Female

DRUGS (1)
  1. MIRALAX [Suspect]
     Active Substance: POLYETHYLENE GLYCOL 3350
     Indication: GASTROINTESTINAL DISORDER
     Dosage: 17 MG, QOD
     Route: 048
     Dates: start: 20200612, end: 20200620

REACTIONS (5)
  - Feeling abnormal [Unknown]
  - Lethargy [Unknown]
  - Abdominal distension [Unknown]
  - Abdominal discomfort [Unknown]
  - Malaise [Unknown]
